FAERS Safety Report 16371996 (Version 3)
Quarter: 2019Q3

REPORT INFORMATION
  Report Type: Spontaneous
  Country: US (occurrence: US)
  Receive Date: 20190530
  Receipt Date: 20190808
  Transmission Date: 20191004
  Serious: Yes (Death)
  Sender: FDA-Public Use
  Company Number: US-JNJFOC-20190538228

PATIENT
  Age: 59 Year
  Sex: Male
  Weight: 128.48 kg

DRUGS (16)
  1. PANTOPRAZOLE [Concomitant]
     Active Substance: PANTOPRAZOLE
  2. RESTORIL [Concomitant]
     Active Substance: TEMAZEPAM
  3. METOPROLOL. [Concomitant]
     Active Substance: METOPROLOL
  4. LIPITOR [Concomitant]
     Active Substance: ATORVASTATIN CALCIUM
  5. TRIAMCINOLONE [Concomitant]
     Active Substance: TRIAMCINOLONE
     Indication: PSORIASIS
  6. TREMFYA [Suspect]
     Active Substance: GUSELKUMAB
     Indication: PSORIASIS
     Route: 065
     Dates: start: 20190401, end: 20190401
  7. COUMADIN [Concomitant]
     Active Substance: WARFARIN SODIUM
  8. VASOTEC [Concomitant]
     Active Substance: ENALAPRIL MALEATE
  9. CITALOPRAM [Concomitant]
     Active Substance: CITALOPRAM HYDROBROMIDE
  10. HYDROCODONE [Concomitant]
     Active Substance: HYDROCODONE
  11. STELARA [Concomitant]
     Active Substance: USTEKINUMAB
  12. WELLBUTRIN [Concomitant]
     Active Substance: BUPROPION HYDROCHLORIDE
  13. METFORMIN [Concomitant]
     Active Substance: METFORMIN HYDROCHLORIDE
  14. LASIX [Concomitant]
     Active Substance: FUROSEMIDE
  15. PROPAFENONE. [Concomitant]
     Active Substance: PROPAFENONE
  16. IRON [Concomitant]
     Active Substance: IRON

REACTIONS (2)
  - Cardiac arrest [Fatal]
  - Septic shock [Fatal]

NARRATIVE: CASE EVENT DATE: 20190502
